FAERS Safety Report 6623855-9 (Version None)
Quarter: 2010Q1

REPORT INFORMATION
  Report Type: 
  Country: None (occurrence: None)
  Receive Date: 20100304
  Receipt Date: 20100217
  Transmission Date: 20100710
  Serious: Yes (Death)
  Sender: FDA-Public Use
  Company Number: 008932

PATIENT
  Age: 12 Year
  Sex: Male

DRUGS (2)
  1. BUSULFEX [Suspect]
     Indication: CORD BLOOD TRANSPLANT THERAPY
  2. FLUDARABINE PHOSPHATE [Concomitant]

REACTIONS (7)
  - ABDOMINAL PAIN [None]
  - BRAIN STEM HAEMORRHAGE [None]
  - ENCEPHALITIS VIRAL [None]
  - HUMAN HERPES VIRUS 6 SEROLOGY POSITIVE [None]
  - PYREXIA [None]
  - RASH [None]
  - THROMBOTIC MICROANGIOPATHY [None]
